FAERS Safety Report 7581818-3 (Version None)
Quarter: 2011Q2

REPORT INFORMATION
  Report Type: 
  Country: None (occurrence: None)
  Receive Date: 20110629
  Receipt Date: 20110614
  Transmission Date: 20111010
  Serious: Yes (Other)
  Sender: FDA-Public Use
  Company Number: CA-GENENTECH-319491

PATIENT
  Sex: Female

DRUGS (3)
  1. XOLAIR [Suspect]
     Indication: ASTHMA
     Dosage: 375 MG, Q2W
     Route: 058
     Dates: start: 20110503
  2. SYMBICORT [Concomitant]
  3. SINGULAIR [Concomitant]

REACTIONS (3)
  - FATIGUE [None]
  - OSTEOPOROSIS [None]
  - OROPHARYNGEAL PAIN [None]
